FAERS Safety Report 5453278-X (Version None)
Quarter: 2007Q3

REPORT INFORMATION
  Report Type: 
  Country: None (occurrence: None)
  Receive Date: 20070914
  Receipt Date: 20070831
  Transmission Date: 20080115
  Serious: Yes (Hospitalization)
  Sender: FDA-Public Use
  Company Number: FR-PFIZER INC-2007075814

PATIENT
  Sex: Male

DRUGS (4)
  1. VIRACEPT [Suspect]
     Dates: start: 20070215, end: 20070615
  2. KALETRA [Suspect]
     Dates: start: 20070615, end: 20070621
  3. COMBIVIR [Suspect]
     Dates: start: 20070621, end: 20070621
  4. RETROVIR [Suspect]

REACTIONS (5)
  - DRUG EXPOSURE DURING PREGNANCY [None]
  - GASTROINTESTINAL DISORDER [None]
  - HYPOGLYCAEMIA [None]
  - HYPONATRAEMIA [None]
  - TREMOR [None]
